FAERS Safety Report 8837669 (Version 2)
Quarter: 2015Q2

REPORT INFORMATION
  Report Type: Report from Study
  Country: US (occurrence: US)
  Receive Date: 20121012
  Receipt Date: 20150421
  Transmission Date: 20150821
  Serious: Yes (Hospitalization)
  Sender: FDA-Public Use
  Company Number: US-ROCHE-1132743

PATIENT
  Age: 12 Year
  Sex: Male
  Weight: 89.89 kg

DRUGS (8)
  1. DESMOPRESSIN [Concomitant]
     Active Substance: DESMOPRESSIN
     Dosage: 0.1, .05, .01 ML MORNING, AFTERNOON, BEDTIME
     Route: 065
  2. TRILEPTAL [Concomitant]
     Active Substance: OXCARBAZEPINE
     Dosage: 600 MG IN MORNING, 750 MG IN NIGHT
     Route: 065
  3. LEVOXYL [Concomitant]
     Active Substance: LEVOTHYROXINE SODIUM
     Route: 048
  4. HYDROCORTISONE. [Concomitant]
     Active Substance: HYDROCORTISONE
     Route: 048
  5. ATIVAN [Concomitant]
     Active Substance: LORAZEPAM
  6. OCTREOTIDE [Concomitant]
     Active Substance: OCTREOTIDE
     Indication: OBESITY
  7. NUTROPIN AQ [Suspect]
     Active Substance: SOMATROPIN
     Indication: HYPOPITUITARISM
     Route: 058
     Dates: start: 200111
  8. LEVOXYL [Concomitant]
     Active Substance: LEVOTHYROXINE SODIUM
     Route: 048

REACTIONS (3)
  - Headache [Unknown]
  - Hypersomnia [Unknown]
  - Seizure [Unknown]

NARRATIVE: CASE EVENT DATE: 200203
